FAERS Safety Report 6094222-4 (Version None)
Quarter: 2009Q1

REPORT INFORMATION
  Report Type: 
  Country: None (occurrence: None)
  Receive Date: 20090226
  Receipt Date: 20090216
  Transmission Date: 20090719
  Serious: Yes (Hospitalization)
  Sender: FDA-Public Use
  Company Number: PHHY2009FR05757

PATIENT
  Sex: Male

DRUGS (7)
  1. LEPONEX [Suspect]
     Indication: ABNORMAL BEHAVIOUR
     Dosage: 50 MG, TID
     Route: 048
     Dates: start: 20081128, end: 20090115
  2. LEPONEX [Interacting]
     Indication: HALLUCINATION
  3. DEPAKOTE [Interacting]
     Indication: PSYCHOTIC DISORDER
     Dosage: 250 MG, TID
     Route: 048
     Dates: start: 20081201, end: 20090101
  4. ATARAX [Interacting]
     Indication: ANXIETY
     Dosage: 12.5 MG, BID
     Route: 048
     Dates: start: 20081201, end: 20090115
  5. STILNOX [Interacting]
     Indication: INSOMNIA
     Dosage: 10 MG, QD
     Route: 048
     Dates: start: 20081201, end: 20090115
  6. LEXOMIL [Interacting]
     Indication: ANXIETY
     Dosage: 0.25 DF, QD
     Route: 048
     Dates: start: 20060101, end: 20090115
  7. GLUCOVANCE [Concomitant]
     Indication: TYPE 2 DIABETES MELLITUS
     Dosage: 1 DF, BID
     Route: 048
     Dates: start: 20060101, end: 20090115

REACTIONS (19)
  - ALANINE AMINOTRANSFERASE INCREASED [None]
  - ANTICONVULSANT DRUG LEVEL DECREASED [None]
  - ASPARTATE AMINOTRANSFERASE INCREASED [None]
  - BLOOD PRESSURE INCREASED [None]
  - C-REACTIVE PROTEIN INCREASED [None]
  - CHEST X-RAY ABNORMAL [None]
  - CYANOSIS [None]
  - CYTOLYTIC HEPATITIS [None]
  - DRUG INTERACTION [None]
  - DYSPNOEA [None]
  - HEART RATE INCREASED [None]
  - HYPERVIGILANCE [None]
  - LUNG DISORDER [None]
  - OVERDOSE [None]
  - OXYGEN SATURATION INCREASED [None]
  - PROTHROMBIN LEVEL ABNORMAL [None]
  - RALES [None]
  - RESPIRATORY DISTRESS [None]
  - SOMNOLENCE [None]
